FAERS Safety Report 8227189-0 (Version None)
Quarter: 2012Q1

REPORT INFORMATION
  Report Type: 
  Country: None (occurrence: None)
  Receive Date: 20120322
  Receipt Date: 20120307
  Transmission Date: 20120608
  Serious: Yes (Other)
  Sender: FDA-Public Use
  Company Number: US-JNJFOC-20120205157

PATIENT
  Sex: Female

DRUGS (26)
  1. GLIPIZIDE [Concomitant]
     Indication: DIABETES MELLITUS
     Route: 065
  2. NAPROXEN SODIUM [Concomitant]
     Indication: PAIN
     Dosage: 2 IN THE MORNING AND 2 AT NIGHT
     Route: 065
  3. ELAVIL [Suspect]
     Indication: PRODUCT USED FOR UNKNOWN INDICATION
     Route: 065
  4. LISINOPRIL [Concomitant]
     Indication: MINERAL SUPPLEMENTATION
     Route: 065
  5. CETIRIZINE HCL [Concomitant]
     Indication: URTICARIA
     Dosage: 1 IN THE MORNING PRN
     Route: 065
  6. RANITIDINE [Concomitant]
     Indication: URTICARIA
     Route: 065
  7. CYCLOBENZAPRINE HCL [Concomitant]
     Indication: FIBROMYALGIA
     Route: 065
  8. IBUPROFEN (ADVIL) [Concomitant]
     Indication: VERTIGO
     Dosage: 6 AM TO 6 PM
     Route: 065
  9. FUROSEMIDE [Concomitant]
     Indication: FLUID RETENTION
     Route: 065
  10. LEVOTHYROXINE SODIUM [Concomitant]
     Indication: THYROID DISORDER
     Route: 065
  11. TRAZODONE HCL [Concomitant]
     Indication: DEPRESSION
     Route: 065
  12. TRAZODONE HCL [Concomitant]
     Indication: MENOPAUSE
     Route: 065
  13. DOCUSATE SODIUM [Concomitant]
     Indication: CONSTIPATION
     Route: 065
  14. ULTRAM [Suspect]
     Indication: PRODUCT USED FOR UNKNOWN INDICATION
     Route: 048
  15. MECLIZINE [Concomitant]
     Indication: VERTIGO
     Dosage: EVERY 4 TO 6 HOURS
     Route: 065
  16. VICODIN ES [Suspect]
     Indication: PRODUCT USED FOR UNKNOWN INDICATION
     Route: 065
  17. GLUCOPHAGE [Suspect]
     Indication: PRODUCT USED FOR UNKNOWN INDICATION
     Route: 065
  18. LANTUS [Concomitant]
     Indication: DIABETES MELLITUS
     Route: 058
  19. CYCLOBENZAPRINE HCL [Concomitant]
     Indication: MUSCLE SPASMS
     Route: 065
  20. OMEPRAZOLE [Concomitant]
     Indication: GASTROOESOPHAGEAL REFLUX DISEASE
     Route: 048
  21. LISINOPRIL [Concomitant]
     Indication: BLOOD PRESSURE
     Route: 065
  22. LIPITOR [Concomitant]
     Indication: BLOOD CHOLESTEROL
     Route: 065
  23. CODEINE [Suspect]
     Indication: PRODUCT USED FOR UNKNOWN INDICATION
     Route: 065
  24. TRAZODONE HCL [Concomitant]
     Indication: SLEEP DISORDER
     Route: 065
  25. HYDROXYZINE PAMOATE [Concomitant]
     Indication: URTICARIA
     Route: 065
  26. TRIAMCINOLONE ACETONIDE [Concomitant]
     Indication: ECZEMA
     Route: 065

REACTIONS (5)
  - DRUG HYPERSENSITIVITY [None]
  - ABDOMINAL PAIN [None]
  - LOSS OF CONSCIOUSNESS [None]
  - DIARRHOEA [None]
  - VOMITING [None]
